FAERS Safety Report 11568890 (Version 1)
Quarter: 2015Q3

REPORT INFORMATION
  Report Type: Spontaneous
  Country: US (occurrence: None)
  Receive Date: 20150928
  Receipt Date: 20150928
  Transmission Date: 20151125
  Serious: No
  Sender: FDA-Public Use
  Company Number: None

PATIENT
  Age: 24 Year
  Sex: Male
  Weight: 104.33 kg

DRUGS (2)
  1. VENLAFAXINE HYDROCHLORIDE ER [Suspect]
     Active Substance: VENLAFAXINE HYDROCHLORIDE
     Indication: DEPRESSION
     Route: 048
     Dates: start: 20150626, end: 20150926
  2. ADVIL [Concomitant]
     Active Substance: IBUPROFEN

REACTIONS (8)
  - Depression [None]
  - Hyperhidrosis [None]
  - Photophobia [None]
  - Drug withdrawal syndrome [None]
  - Sinus headache [None]
  - Headache [None]
  - Feeling hot [None]
  - Product substitution issue [None]

NARRATIVE: CASE EVENT DATE: 20150626
